FAERS Safety Report 9937933 (Version 1)
Quarter: 2014Q1

REPORT INFORMATION
  Report Type: Spontaneous
  Country: US (occurrence: US)
  Receive Date: 20140303
  Receipt Date: 20140303
  Transmission Date: 20141002
  Serious: No
  Sender: FDA-Public Use
  Company Number: US-BIOGENIDEC-2014BI016985

PATIENT
  Age: 41 Year
  Sex: Female

DRUGS (10)
  1. TECFIDERA [Suspect]
     Indication: MULTIPLE SCLEROSIS
     Route: 048
  2. AMPYRA [Concomitant]
  3. COZAAR [Concomitant]
  4. FLEXERIL [Concomitant]
  5. GABAPENTIN [Concomitant]
  6. LIPITOR [Concomitant]
  7. MYRBETRIQ [Concomitant]
  8. TOPAMAX [Concomitant]
  9. VIIBRYD [Concomitant]
  10. ZYRTEC [Concomitant]
     Indication: HYPERSENSITIVITY

REACTIONS (3)
  - Fall [Recovered/Resolved]
  - Pain in extremity [Unknown]
  - Fracture [Unknown]
